FAERS Safety Report 8285457-0 (Version None)
Quarter: 2012Q2

REPORT INFORMATION
  Report Type: 
  Country: None (occurrence: None)
  Receive Date: 20120413
  Receipt Date: 20120124
  Transmission Date: 20120825
  Serious: No
  Sender: FDA-Public Use
  Company Number: US-ASTRAZENECA-2011SE61273

PATIENT
  Age: 64 Year
  Sex: Female

DRUGS (3)
  1. NEXIUM [Suspect]
     Route: 048
  2. PLAQUENIL [Concomitant]
  3. ANTIBIOTIC [Concomitant]

REACTIONS (8)
  - DISEASE RECURRENCE [None]
  - SYSTEMIC LUPUS ERYTHEMATOSUS [None]
  - NASOPHARYNGITIS [None]
  - DRUG DOSE OMISSION [None]
  - GASTROOESOPHAGEAL REFLUX DISEASE [None]
  - DYSPEPSIA [None]
  - SINUSITIS [None]
  - FEELING ABNORMAL [None]
